FAERS Safety Report 5555605-1 (Version None)
Quarter: 2007Q4

REPORT INFORMATION
  Report Type: 
  Country: None (occurrence: None)
  Receive Date: 20071213
  Receipt Date: 20071203
  Transmission Date: 20080405
  Serious: Yes (Death, Life-Threatening)
  Sender: FDA-Public Use
  Company Number: DE-BAXTER-2007BH008261

PATIENT
  Age: 22 Year
  Sex: Female

DRUGS (11)
  1. HUMAN ALBUMIN IMMUNO 20% [Suspect]
     Indication: BLOOD OSMOLARITY DECREASED
     Route: 042
     Dates: start: 20070717, end: 20070717
  2. HUMAN ALBUMIN IMMUNO 20% [Suspect]
     Route: 042
     Dates: start: 20070717, end: 20070717
  3. HUMAN ALBUMIN IMMUNO 20% [Suspect]
     Route: 042
     Dates: start: 20070717, end: 20070717
  4. HEPARIN [Concomitant]
  5. MORPHINE [Concomitant]
  6. NOREPINEPHRINE BITARTRATE [Concomitant]
     Indication: SEPSIS
  7. LASIX [Concomitant]
     Indication: SEPSIS
  8. PIPERACILLIN [Concomitant]
     Indication: SEPSIS
     Dates: start: 20070717, end: 20070719
  9. COMBACTAM [Concomitant]
     Indication: SEPSIS
     Dates: start: 20070717, end: 20070719
  10. PROPOFOL [Concomitant]
     Indication: SEPSIS
  11. GENTAMICIN SULFATE [Concomitant]
     Indication: SEPSIS
     Dates: start: 20070716, end: 20070719

REACTIONS (15)
  - BLOOD PRESSURE DECREASED [None]
  - CARDIAC ARREST [None]
  - CONTINUOUS HAEMODIAFILTRATION [None]
  - DRUG PHYSIOLOGIC INCOMPATIBILITY [None]
  - ELECTROMECHANICAL DISSOCIATION [None]
  - HYPOGLYCAEMIA [None]
  - HYPOTONIA [None]
  - NO THERAPEUTIC RESPONSE [None]
  - PERITONITIS [None]
  - RENAL FAILURE ACUTE [None]
  - RESPIRATORY FAILURE [None]
  - SEPSIS [None]
  - TACHYCARDIA [None]
  - VENTRICULAR FIBRILLATION [None]
  - VENTRICULAR TACHYCARDIA [None]
